FAERS Safety Report 6051463-X (Version None)
Quarter: 2009Q1

REPORT INFORMATION
  Report Type: 
  Country: None (occurrence: None)
  Receive Date: 20090126
  Receipt Date: 20090116
  Transmission Date: 20090719
  Serious: Yes (Hospitalization)
  Sender: FDA-Public Use
  Company Number: A0716229A

PATIENT
  Age: 47 Year
  Sex: Female
  Weight: 110.5 kg

DRUGS (3)
  1. AVANDIA [Suspect]
     Dosage: 4MG PER DAY
     Route: 048
     Dates: start: 20020101, end: 20070501
  2. METFORMIN [Concomitant]
     Dates: start: 19970101
  3. DIABETA [Concomitant]
     Dates: start: 19970101

REACTIONS (4)
  - CARDIAC FAILURE CONGESTIVE [None]
  - EXTRASYSTOLES [None]
  - HEART INJURY [None]
  - RESPIRATORY FAILURE [None]
